FAERS Safety Report 13896780 (Version 1)
Quarter: 2017Q3

REPORT INFORMATION
  Report Type: Spontaneous
  Country: BR (occurrence: BR)
  Receive Date: 20170823
  Receipt Date: 20170823
  Transmission Date: 20171127
  Serious: Yes (Other)
  Sender: FDA-Public Use
  Company Number: BR-PFIZER INC-2017358307

PATIENT
  Age: 15 Year
  Sex: Male

DRUGS (6)
  1. LAMOTRIGINE. [Concomitant]
     Active Substance: LAMOTRIGINE
     Dosage: BID
  2. RISPERIDONE. [Concomitant]
     Active Substance: RISPERIDONE
     Dosage: BID
  3. TALIGLUCERASE ALFA [Suspect]
     Active Substance: TALIGLUCERASE ALFA
     Indication: GAUCHER^S DISEASE TYPE I
     Dosage: 22 IU/KG EVERY 2 WEEKS
     Route: 042
  4. CLOBAZAM [Concomitant]
     Active Substance: CLOBAZAM
     Dosage: BID
  5. FENOBARBITAL [Concomitant]
     Active Substance: PHENOBARBITAL
     Dosage: BID
  6. TOPIRAMATE. [Concomitant]
     Active Substance: TOPIRAMATE
     Dosage: BID

REACTIONS (2)
  - Tremor [Unknown]
  - Seizure [Unknown]

NARRATIVE: CASE EVENT DATE: 201707
